FAERS Safety Report 4965484-9 (Version None)
Quarter: 2006Q2

REPORT INFORMATION
  Report Type: 
  Country: None (occurrence: None)
  Receive Date: 20060406
  Receipt Date: 20060202
  Transmission Date: 20061013
  Serious: Yes (Hospitalization, Other)
  Sender: FDA-Public Use
  Company Number: US-MERCK-0602USA01701

PATIENT
  Age: 62 Year
  Sex: Male
  Weight: 73 kg

DRUGS (2)
  1. VIOXX [Suspect]
     Route: 048
     Dates: start: 19990801, end: 20041001
  2. LOTREL [Concomitant]
     Route: 065

REACTIONS (6)
  - BLOOD PRESSURE ABNORMAL [None]
  - CARDIAC DISORDER [None]
  - CARDIAC MURMUR [None]
  - CEREBROVASCULAR ACCIDENT [None]
  - EMOTIONAL DISORDER [None]
  - HYPERTENSION [None]
